FAERS Safety Report 8239411-5 (Version None)
Quarter: 2012Q1

REPORT INFORMATION
  Report Type: 
  Country: None (occurrence: None)
  Receive Date: 20120328
  Receipt Date: 20120323
  Transmission Date: 20120608
  Serious: Yes (Hospitalization)
  Sender: FDA-Public Use
  Company Number: US-BAYER-2012-028790

PATIENT
  Age: 35 Year
  Sex: Female

DRUGS (5)
  1. DOXYCYCLINE [Concomitant]
     Dosage: 100 MG, BID
     Route: 048
  2. YASMIN [Suspect]
     Dosage: UNK
  3. MOTRIN [Concomitant]
     Dosage: 600 MG, UNK
     Route: 048
  4. TYLENOL W/ CODEINE NO. 3 [Concomitant]
     Dosage: UNK UNK, TID
     Route: 048
  5. WELLBUTRIN XL [Concomitant]
     Dosage: 150 MG, QD
     Route: 048

REACTIONS (1)
  - PULMONARY EMBOLISM [None]
